FAERS Safety Report 5143667-5 (Version None)
Quarter: 2006Q4

REPORT INFORMATION
  Report Type: 
  Country: None (occurrence: None)
  Receive Date: 20061103
  Receipt Date: 20061027
  Transmission Date: 20070319
  Serious: Yes (Death)
  Sender: FDA-Public Use
  Company Number: CA-ROXANE LABORATORIES, INC-2006-DE-05718GD

PATIENT
  Age: 46 Year
  Sex: Female

DRUGS (3)
  1. PREDNISONE TAB [Suspect]
     Indication: POLYCHONDRITIS
     Dosage: 60 MG (FOR 4 WEEKS); THEN SCHEDULED FOR A SLOW  TAPER (5 MG EVERY 6 WEEKS)
  2. CYCLOPHOSPHAMIDE [Suspect]
     Indication: POLYCHONDRITIS
  3. CALCIUM SUPPLEMENTS [Concomitant]
     Indication: POLYCHONDRITIS

REACTIONS (2)
  - DISEASE PROGRESSION [None]
  - PNEUMONIA [None]
